FAERS Safety Report 4505503-7 (Version None)
Quarter: 2004Q4

REPORT INFORMATION
  Report Type: 
  Country: None (occurrence: None)
  Receive Date: 20041119
  Receipt Date: 20040622
  Transmission Date: 20050328
  Serious: Yes (Other)
  Sender: FDA-Public Use
  Company Number: FR-ROCHE-371696

PATIENT
  Age: 27 Year
  Sex: Female

DRUGS (1)
  1. RIVOTRIL [Suspect]
     Indication: DRUG USE FOR UNKNOWN INDICATION
     Route: 065

REACTIONS (4)
  - ANTEROGRADE AMNESIA [None]
  - DEPRESSED LEVEL OF CONSCIOUSNESS [None]
  - SEXUAL ASSAULT VICTIM [None]
  - SOMNOLENCE [None]
